FAERS Safety Report 19903821 (Version 1)
Quarter: 2021Q4

REPORT INFORMATION
  Report Type: Report from Study
  Country: DE (occurrence: DE)
  Receive Date: 20211001
  Receipt Date: 20211001
  Transmission Date: 20220303
  Serious: Yes (Hospitalization)
  Sender: FDA-Public Use
  Company Number: DE-SA-2020SA306619

PATIENT
  Age: 71 Year
  Sex: Female

DRUGS (18)
  1. SARILUMAB [Suspect]
     Active Substance: SARILUMAB
     Indication: Rheumatoid arthritis
     Dosage: 200 MG, QOW
     Route: 058
     Dates: start: 20200820
  2. LEFLUNOMIDE [Suspect]
     Active Substance: LEFLUNOMIDE
     Indication: Rheumatoid arthritis
     Dosage: 15 MG, QD
     Route: 048
     Dates: start: 20180208, end: 20210709
  3. SULFASALAZINE [Suspect]
     Active Substance: SULFASALAZINE
     Indication: Rheumatoid arthritis
     Dosage: 1000 MG, BID
     Route: 048
     Dates: start: 199608, end: 20201010
  4. SULFASALAZINE [Concomitant]
     Active Substance: SULFASALAZINE
     Indication: Rheumatoid arthritis
     Dosage: 2 DF, BID
     Route: 048
     Dates: start: 20210216
  5. PREDNISOLONE [Concomitant]
     Active Substance: PREDNISOLONE
     Indication: Rheumatoid arthritis
     Dosage: 5 MG, QD
     Route: 048
     Dates: start: 1996
  6. ETORICOXIB [Concomitant]
     Active Substance: ETORICOXIB
     Indication: Arthralgia
     Dosage: 60 MG, PRN
     Route: 048
     Dates: start: 1996
  7. METAMIZOLE SODIUM [Concomitant]
     Active Substance: METAMIZOLE SODIUM
     Indication: Analgesic therapy
     Dosage: 500 MG, PRN
     Route: 048
     Dates: start: 1996
  8. FENTANYL [Concomitant]
     Active Substance: FENTANYL
     Indication: Spinal pain
     Dosage: 75 UGONE PATCH EVERY THREE DAYS
     Dates: start: 20080417
  9. LYRICA [Concomitant]
     Active Substance: PREGABALIN
     Indication: Neuralgia
     Dosage: 150 MG, BID
     Route: 048
     Dates: start: 20080417
  10. MCP [Concomitant]
     Active Substance: METOCLOPRAMIDE HYDROCHLORIDE
     Indication: Nausea
     Dosage: 10 MG, QID
     Route: 048
     Dates: start: 20150113
  11. PROLIA [Concomitant]
     Active Substance: DENOSUMAB
     Indication: Osteoporosis
     Dosage: 60 MG, Q6M
     Dates: start: 20100128
  12. VITAMIN E FORTE [Concomitant]
     Indication: Hypovitaminosis
     Dosage: 400 IU, QD
     Route: 048
     Dates: start: 20051010
  13. CALCIUM VERLA D [Concomitant]
     Indication: Osteoporosis
     Dosage: 600 MG, QD
     Route: 048
     Dates: start: 20100128
  14. CHOLECALCIFEROL [Concomitant]
     Active Substance: CHOLECALCIFEROL
     Indication: Osteoporosis
     Dosage: 2000 IU, QOW
     Route: 048
     Dates: start: 20100128
  15. AMLODIPINE [Concomitant]
     Active Substance: AMLODIPINE BESYLATE
     Indication: Hypertonia
     Dosage: 10 MG, QD
     Route: 048
     Dates: start: 20070227
  16. ZOLPIDEM [Concomitant]
     Active Substance: ZOLPIDEM TARTRATE
     Indication: Sleep disorder
     Dosage: 10 MG, QD
     Dates: start: 20051010
  17. METOPROLOL SUCCINATE [Concomitant]
     Active Substance: METOPROLOL SUCCINATE
     Indication: Hypertonia
     Dosage: 47.50 MG
     Route: 048
     Dates: start: 20171026
  18. OMEPRAZOLE [Concomitant]
     Active Substance: OMEPRAZOLE
     Indication: Dyspepsia
     Dosage: 40 MG, Q12H
     Dates: start: 20070227

REACTIONS (3)
  - Arthrodesis [Recovered/Resolved]
  - Bursitis [Recovered/Resolved]
  - Anaemia [Not Recovered/Not Resolved]

NARRATIVE: CASE EVENT DATE: 20210715
